FAERS Safety Report 10888254 (Version 1)
Quarter: 2015Q1

REPORT INFORMATION
  Report Type: Other
  Country: GB (occurrence: GB)
  Receive Date: 20150304
  Receipt Date: 20150304
  Transmission Date: 20150721
  Serious: Yes (Hospitalization)
  Sender: FDA-Public Use
  Company Number: GB-MYLANLABS-2015M1005362

PATIENT

DRUGS (1)
  1. PIOGLITAZONE [Suspect]
     Active Substance: PIOGLITAZONE
     Dosage: IN THE MORNING
     Route: 048
     Dates: end: 20131219

REACTIONS (2)
  - Pleural effusion [Unknown]
  - Oedema [Unknown]
